FAERS Safety Report 11249073 (Version 1)
Quarter: 2015Q3

REPORT INFORMATION
  Report Type: Spontaneous
  Country: US (occurrence: US)
  Receive Date: 20150708
  Receipt Date: 20150708
  Transmission Date: 20151125
  Serious: No
  Sender: FDA-Public Use
  Company Number: US-ELI_LILLY_AND_COMPANY-US200809005666

PATIENT
  Age: 60 Year
  Sex: Male

DRUGS (9)
  1. FLOMAX [Concomitant]
     Active Substance: TAMSULOSIN HYDROCHLORIDE
  2. DIGOXIN. [Concomitant]
     Active Substance: DIGOXIN
     Dosage: 0.125 D/F, UNK
  3. VITAMIN B12 [Concomitant]
     Active Substance: CYANOCOBALAMIN
  4. EYE DROPS [Concomitant]
     Active Substance: TETRAHYDROZOLINE HYDROCHLORIDE
     Indication: GLAUCOMA
     Route: 047
  5. BENAZEPRIL [Concomitant]
     Active Substance: BENAZEPRIL HYDROCHLORIDE
  6. ALIMTA [Suspect]
     Active Substance: PEMETREXED DISODIUM
     Indication: LUNG CANCER METASTATIC
     Dosage: 500 MG/M2, EVERY THREE WEEKS
     Dates: start: 20080725, end: 20080815
  7. FOLIC ACID. [Concomitant]
     Active Substance: FOLIC ACID
  8. LIPITOR [Concomitant]
     Active Substance: ATORVASTATIN CALCIUM
  9. NORVASC [Concomitant]
     Active Substance: AMLODIPINE BESYLATE

REACTIONS (4)
  - Fatigue [Recovering/Resolving]
  - Pain [Unknown]
  - Influenza like illness [Unknown]
  - Dyspnoea [Recovering/Resolving]
